FAERS Safety Report 4952592-1 (Version None)
Quarter: 2006Q1

REPORT INFORMATION
  Report Type: 
  Country: None (occurrence: None)
  Receive Date: 20060317
  Receipt Date: 20060310
  Transmission Date: 20060701
  Serious: Yes (Death, Hospitalization, Other)
  Sender: FDA-Public Use
  Company Number: US-2005-000749

PATIENT
  Age: 49 Year
  Sex: Male
  Weight: 125.6 kg

DRUGS (4)
  1. GM-CSF (SARGRAMOSTIM) INJECTION [Suspect]
     Indication: MALIGNANT MELANOMA
     Dosage: 250 UG/DAY 14 D ON 14D OFF SUBCUTANEOUS
     Route: 058
     Dates: start: 20020130, end: 20050105
  2. PROPANOLOL (PROPANOLOL) [Concomitant]
  3. MOTRIN [Concomitant]
  4. NEURONTIN [Concomitant]

REACTIONS (9)
  - ACUTE MYELOID LEUKAEMIA [None]
  - COCCIDIOIDOMYCOSIS [None]
  - DEEP VEIN THROMBOSIS [None]
  - FATIGUE [None]
  - HAEMATOCRIT DECREASED [None]
  - HAEMOGLOBIN DECREASED [None]
  - PULMONARY COCCIDIOIDES [None]
  - RENAL FAILURE [None]
  - THROMBOCYTOPENIA [None]
